FAERS Safety Report 7618983-5 (Version None)
Quarter: 2011Q3

REPORT INFORMATION
  Report Type: 
  Country: None (occurrence: None)
  Receive Date: 20110718
  Receipt Date: 20110705
  Transmission Date: 20111222
  Serious: No
  Sender: FDA-Public Use
  Company Number: GB-MYLANLABS-2011S1013859

PATIENT
  Age: 18 Year
  Sex: Female

DRUGS (3)
  1. IMPLANON [Interacting]
     Indication: CONTRACEPTION
     Route: 059
     Dates: start: 20100727
  2. LAMOTRIGINE [Suspect]
     Indication: EPILEPSY
  3. IMPLANON [Interacting]
     Route: 059
     Dates: start: 20100727

REACTIONS (5)
  - DRUG INTERACTION [None]
  - MENOMETRORRHAGIA [None]
  - FATIGUE [None]
  - INCREASED TENDENCY TO BRUISE [None]
  - DYSMENORRHOEA [None]
